FAERS Safety Report 19397279 (Version 1)
Quarter: 2021Q2

REPORT INFORMATION
  Report Type: Other
  Country: DE (occurrence: DE)
  Receive Date: 20210609
  Receipt Date: 20210609
  Transmission Date: 20210717
  Serious: Yes (Congenital Anomaly)
  Sender: FDA-Public Use
  Company Number: DE-ROCHE-2841072

PATIENT
  Age: 27 Day
  Sex: Male
  Weight: 6.23 kg

DRUGS (12)
  1. POLIOMYELITIS VACCINE [Concomitant]
     Active Substance: POLIOMYELITIS VACCINE
     Dates: start: 20200817, end: 20200817
  2. OCRELIZUMAB. [Suspect]
     Active Substance: OCRELIZUMAB
     Indication: PRODUCT USED FOR UNKNOWN INDICATION
     Route: 064
  3. DIPHTHERIA, TETANUS AND ACELLULAR PERTUSSIS [Concomitant]
     Dates: start: 20200817, end: 20200817
  4. PNEUMOCOCCAL VACCINE POLYVALENT NOS [Concomitant]
     Active Substance: PNEUMOCOCCAL VACCINE POLYVALENT
     Indication: IMMUNISATION
     Dates: start: 20200604, end: 20200604
  5. HEPATITIS B VACCINE [Concomitant]
     Active Substance: HEPATITIS B VIRUS VACCINE
     Indication: IMMUNISATION
     Dates: start: 20200604, end: 20200604
  6. HAEMOPHILUS INFLUENZAE TYPE B [Concomitant]
     Active Substance: HAEMOPHILUS INFLUENZAE TYPE B
     Dates: start: 20200817, end: 20200817
  7. HEPATITIS B VACCINE [Concomitant]
     Active Substance: HEPATITIS B VIRUS VACCINE
     Dates: start: 20200817, end: 20200817
  8. PNEUMOCOCCAL VACCINE POLYVALENT NOS [Concomitant]
     Active Substance: PNEUMOCOCCAL VACCINE POLYVALENT
     Dates: start: 20200817, end: 20200817
  9. DIPHTHERIA, TETANUS AND ACELLULAR PERTUSSIS [Concomitant]
     Indication: IMMUNISATION
     Dates: start: 20200604, end: 20200604
  10. HAEMOPHILUS INFLUENZAE TYPE B [Concomitant]
     Active Substance: HAEMOPHILUS INFLUENZAE TYPE B
     Indication: IMMUNISATION
     Dates: start: 20200604, end: 20200604
  11. ROTAVIRUS VACCINE [Concomitant]
     Active Substance: HUMAN ROTAVIRUS A
     Indication: IMMUNISATION
     Dates: start: 20200604
  12. POLIOMYELITIS VACCINE [Concomitant]
     Active Substance: POLIOMYELITIS VACCINE
     Indication: IMMUNISATION
     Dates: start: 20200604, end: 20200604

REACTIONS (2)
  - Iris coloboma [Not Recovered/Not Resolved]
  - Foetal exposure during pregnancy [Unknown]

NARRATIVE: CASE EVENT DATE: 20200420
